FAERS Safety Report 8104792-X (Version None)
Quarter: 2012Q1

REPORT INFORMATION
  Report Type: 
  Country: None (occurrence: None)
  Receive Date: 20120130
  Receipt Date: 20120123
  Transmission Date: 20120608
  Serious: Yes (Hospitalization, Other)
  Sender: FDA-Public Use
  Company Number: JP-PFIZER INC-2012012295

PATIENT
  Age: 70 Year
  Sex: Female

DRUGS (4)
  1. LOSARTAN POTASSIUM [Concomitant]
     Indication: HYPERTENSION
     Dosage: 25 MG, DAILY
     Route: 048
  2. EVISTA [Concomitant]
     Indication: OSTEOPOROSIS POSTMENOPAUSAL
     Dosage: 60 MG, DAILY
     Route: 048
  3. LYRICA [Suspect]
     Indication: NEURALGIA
     Dosage: 25MG, 2 CAPSULES DAILY
     Route: 048
     Dates: start: 20120104, end: 20120111
  4. RABEPRAZOLE SODIUM [Concomitant]
     Indication: GASTRIC ULCER
     Dosage: 20 MG, DAILY
     Route: 048

REACTIONS (1)
  - RENAL DISORDER [None]
